FAERS Safety Report 25736031 (Version 1)
Quarter: 2025Q3

REPORT INFORMATION
  Report Type: Spontaneous
  Country: US (occurrence: US)
  Receive Date: 20250828
  Receipt Date: 20250828
  Transmission Date: 20251020
  Serious: No
  Sender: Unknown Manufacturer
  Company Number: US-THERATECHNOLOGIES INC.-2025-THE-IBA-000052

PATIENT

DRUGS (9)
  1. TROGARZO [Suspect]
     Active Substance: IBALIZUMAB-UIYK
     Indication: HIV infection
     Route: 042
     Dates: start: 20230914, end: 20230914
  2. TROGARZO [Suspect]
     Active Substance: IBALIZUMAB-UIYK
     Indication: Acquired immunodeficiency syndrome
     Route: 042
  3. TROGARZO [Suspect]
     Active Substance: IBALIZUMAB-UIYK
     Route: 042
     Dates: start: 20231204, end: 20231204
  4. TROGARZO [Suspect]
     Active Substance: IBALIZUMAB-UIYK
     Route: 042
  5. LENACAPAVIR [Suspect]
     Active Substance: LENACAPAVIR
     Indication: HIV infection
     Dosage: 300 MG TAB, 2 TABS, QD FOR 2 DAYS
     Route: 065
     Dates: start: 20230802
  6. LENACAPAVIR [Suspect]
     Active Substance: LENACAPAVIR
     Indication: Acquired immunodeficiency syndrome
     Route: 058
  7. CABENUVA [Concomitant]
     Active Substance: CABOTEGRAVIR\RILPIVIRINE
     Indication: HIV infection
     Route: 065
  8. MEDROXYPROGESTERONE [Concomitant]
     Active Substance: MEDROXYPROGESTERONE
     Indication: Product used for unknown indication
     Route: 065
  9. LEVETIRACETAM [Concomitant]
     Active Substance: LEVETIRACETAM
     Indication: Product used for unknown indication
     Route: 065

REACTIONS (2)
  - Cough [Unknown]
  - Product dose omission issue [Recovered/Resolved]

NARRATIVE: CASE EVENT DATE: 20231102
